FAERS Safety Report 24741600 (Version 2)
Quarter: 2024Q4

REPORT INFORMATION
  Report Type: Spontaneous
  Country: US (occurrence: US)
  Receive Date: 20241217
  Receipt Date: 20241220
  Transmission Date: 20250115
  Serious: Yes (Other)
  Sender: RECKITT BENCKISER
  Company Number: US-PROD-AS2-212756134-20-24-USA-RB-0013853

PATIENT
  Age: 77 Year
  Sex: Female
  Weight: 56.699 kg

DRUGS (1)
  1. MUCINEX INSTASOOTHE SORE THROAT PLUS SOOTHING COMFORT [Suspect]
     Active Substance: HEXYLRESORCINOL
     Indication: Product used for unknown indication
     Dosage: 1 DF, SINGLE
     Route: 048
     Dates: start: 20241205, end: 20241205

REACTIONS (3)
  - Vision blurred [Recovered/Resolved]
  - Brain fog [Recovered/Resolved]
  - Dizziness [Recovered/Resolved]

NARRATIVE: CASE EVENT DATE: 20241205
